FAERS Safety Report 6922015-1 (Version None)
Quarter: 2010Q3

REPORT INFORMATION
  Report Type: 
  Country: None (occurrence: None)
  Receive Date: 20100812
  Receipt Date: 20100803
  Transmission Date: 20110219
  Serious: Yes (Hospitalization, Other)
  Sender: FDA-Public Use
  Company Number: FR-ABBOTT-10P-056-0661885-00

PATIENT
  Sex: Male

DRUGS (4)
  1. NORVIR [Suspect]
     Indication: HIV INFECTION
     Route: 048
     Dates: start: 20050501
  2. VEDEX [Suspect]
     Indication: HIV INFECTION
     Route: 048
     Dates: start: 20000402, end: 20070401
  3. ZIAGEN [Suspect]
     Indication: HIV INFECTION
     Route: 048
     Dates: start: 20000402
  4. REYATAZ [Suspect]
     Indication: HIV INFECTION
     Route: 048
     Dates: start: 20050501

REACTIONS (4)
  - HAEMATEMESIS [None]
  - MELAENA [None]
  - PORTAL HYPERTENSION [None]
  - VARICES OESOPHAGEAL [None]
